FAERS Safety Report 24147055 (Version 1)
Quarter: 2024Q3

REPORT INFORMATION
  Report Type: Spontaneous
  Country: FR (occurrence: FR)
  Receive Date: 20240729
  Receipt Date: 20240729
  Transmission Date: 20241016
  Serious: Yes (Hospitalization)
  Sender: TEVA
  Company Number: None

PATIENT
  Age: 89 Year
  Sex: Male
  Weight: 58.1 kg

DRUGS (15)
  1. DULOXETINE [Suspect]
     Active Substance: DULOXETINE
     Indication: Depression
     Dosage: 1-0-0, DULOXETINE HYDROCHLORIDE
     Route: 048
     Dates: start: 20240510, end: 20240703
  2. PREVNAR 13 [Concomitant]
     Active Substance: STREPTOCOCCUS PNEUMONIAE TYPE 1 CAPSULAR POLYSACCHARIDE DIPHTHERIA CRM197 PROTEIN CONJUGATE ANTIGEN\
     Indication: Immunisation
     Dosage: TIME INTERVAL: TOTAL
     Route: 030
     Dates: start: 20240513, end: 20240513
  3. BENSERAZIDE HYDROCHLORIDE\LEVODOPA [Concomitant]
     Active Substance: BENSERAZIDE HYDROCHLORIDE\LEVODOPA
     Indication: Parkinson^s disease
     Dosage: 1-1-1, 125 (100 MG/25 MG)
     Route: 048
     Dates: start: 2024
  4. LEVOTHYROXINE [Concomitant]
     Active Substance: LEVOTHYROXINE\LEVOTHYROXINE SODIUM
     Indication: Hypothyroidism
     Dosage: 1-0-0, SCORED TABLET
     Route: 048
     Dates: start: 2024
  5. POLYETHYLENE GLYCOL 4000 [Concomitant]
     Active Substance: POLYETHYLENE GLYCOL 4000
     Indication: Constipation
     Dosage: 2-2-0
     Route: 048
     Dates: start: 2024
  6. NICARDIPIN HYDROCHLORIDE [Concomitant]
     Indication: Hypertension
     Dosage: TIME INTERVAL: AS NECESSARY: 1-1-1 IF NECESSARY
     Route: 048
     Dates: start: 20240627
  7. AUGMENTIN [Concomitant]
     Active Substance: AMOXICILLIN\CLAVULANATE POTASSIUM
     Indication: Prophylaxis
     Dosage: 1-1-1, 1 G/125 MG ADULTS, (AMOXICILLIN/CLAVULANIC ACID RATIO: 8/1),  POWDER FOR ORAL SUSPENSION I...
     Route: 048
     Dates: start: 20240627, end: 20240705
  8. ACETAMINOPHEN [Concomitant]
     Active Substance: ACETAMINOPHEN
     Indication: Pain
     Dosage: 1-1-1
     Route: 048
     Dates: start: 2024
  9. MELATONIN [Concomitant]
     Active Substance: MELATONIN
     Indication: Insomnia
     Dosage: 0-0-2
     Route: 048
     Dates: start: 2024
  10. LOVENOX [Concomitant]
     Active Substance: ENOXAPARIN SODIUM
     Indication: Thrombosis prophylaxis
     Dosage: 0-0-1, 4000 IU ANTI-XA/0.4 ML, SOLUTION FOR INJECTION IN AMPOULE
     Route: 058
     Dates: start: 20240705
  11. CHOLECALCIFEROL [Concomitant]
     Active Substance: CHOLECALCIFEROL
     Indication: Vitamin supplementation
     Dosage: 1 AMP PER MONTH
     Route: 048
     Dates: start: 2024
  12. AMLODIPINE [Concomitant]
     Active Substance: AMLODIPINE BESYLATE
     Indication: Hypertension
     Dosage: 1-0-0
     Route: 048
     Dates: start: 2024
  13. CALCIUM PHOSPHATE, DIBASIC, ANHYDROUS\MAGNESIUM GLYCEROPHOSPHATE\PHOSP [Concomitant]
     Active Substance: CALCIUM PHOSPHATE, DIBASIC, ANHYDROUS\MAGNESIUM GLYCEROPHOSPHATE\PHOSPHORIC ACID\SODIUM PHOSPHATE, D
     Indication: Hypophosphataemia
     Dosage: 150-0-150, ORAL SOLUTION IN DROPS
     Route: 048
     Dates: start: 20240628, end: 20240702
  14. OXAZEPAM [Concomitant]
     Active Substance: OXAZEPAM
     Indication: Anxiety
     Dosage: 0.5-0-0.5
     Route: 048
     Dates: start: 2024
  15. AMIODARONE [Concomitant]
     Active Substance: AMIODARONE
     Indication: Atrial fibrillation
     Dosage: EXCEPT SATURDAY AND SUNDAY
     Route: 048
     Dates: start: 2024

REACTIONS (1)
  - Hyponatraemia [Recovered/Resolved]

NARRATIVE: CASE EVENT DATE: 20240701
